FAERS Safety Report 10082416 (Version 1)
Quarter: 2014Q2

REPORT INFORMATION
  Report Type: Spontaneous
  Country: US (occurrence: None)
  Receive Date: 20140415
  Receipt Date: 20140415
  Transmission Date: 20141212
  Serious: Yes (Hospitalization)
  Sender: FDA-Public Use
  Company Number: None

PATIENT
  Age: 35 Year
  Sex: Female

DRUGS (1)
  1. TECFIDERA [Suspect]

REACTIONS (6)
  - Muscular weakness [None]
  - Gait disturbance [None]
  - Burning sensation [None]
  - Hypoaesthesia [None]
  - Balance disorder [None]
  - Multiple sclerosis [None]
